FAERS Safety Report 16760504 (Version 2)
Quarter: 2019Q3

REPORT INFORMATION
  Report Type: Report from Study
  Country: GB (occurrence: GB)
  Receive Date: 20190830
  Receipt Date: 20190925
  Transmission Date: 20191005
  Serious: Yes (Hospitalization)
  Sender: FDA-Public Use
  Company Number: PHHY2019GB200911

PATIENT
  Sex: Male

DRUGS (1)
  1. COSENTYX [Suspect]
     Active Substance: SECUKINUMAB
     Indication: PSORIASIS
     Dosage: 300 MG, QMO (PREFILLED PEN)
     Route: 065
     Dates: start: 20180111

REACTIONS (4)
  - Infection [Unknown]
  - Headache [Recovered/Resolved]
  - Urinary tract infection [Unknown]
  - Skin mass [Unknown]
